FAERS Safety Report 8988817 (Version 1)
Quarter: 2012Q4

REPORT INFORMATION
  Report Type: Report from Study
  Country: JP (occurrence: JP)
  Receive Date: 20121228
  Receipt Date: 20121228
  Transmission Date: 20130627
  Serious: Yes (Death, Life-Threatening, Hospitalization)
  Sender: FDA-Public Use
  Company Number: JP-CELGENEUS-087-50794-12122927

PATIENT
  Age: 76 None
  Sex: Male

DRUGS (1)
  1. VIDAZA [Suspect]
     Indication: DRUG USE FOR UNKNOWN INDICATION
     Dosage: 63.2 Milligram
     Route: 041
     Dates: start: 20121022, end: 20121030

REACTIONS (4)
  - Cerebral haemorrhage [Fatal]
  - Bone marrow failure [Unknown]
  - Pyrexia [Unknown]
  - Anaemia [Unknown]
